FAERS Safety Report 6569926-7 (Version None)
Quarter: 2010Q1

REPORT INFORMATION
  Report Type: 
  Country: None (occurrence: None)
  Receive Date: 20100202
  Receipt Date: 20100202
  Transmission Date: 20100710
  Serious: Yes (Other)
  Sender: FDA-Public Use
  Company Number: None

PATIENT
  Age: 55 Year
  Sex: Female
  Weight: 61.2356 kg

DRUGS (1)
  1. MEGESTROL ACETATE [Suspect]
     Indication: UTERINE CANCER
     Dosage: 40 MGS 2 TIMES DAILY PO
     Route: 048
     Dates: start: 20100115, end: 20100124

REACTIONS (5)
  - ANXIETY [None]
  - DRUG HYPERSENSITIVITY [None]
  - ORAL DISCOMFORT [None]
  - PARAESTHESIA ORAL [None]
  - THROAT TIGHTNESS [None]
